FAERS Safety Report 9060586 (Version 1)
Quarter: 2013Q1

REPORT INFORMATION
  Report Type: Spontaneous
  Country: AU (occurrence: AU)
  Receive Date: 20130212
  Receipt Date: 20130212
  Transmission Date: 20140127
  Serious: Yes (Other)
  Sender: FDA-Public Use
  Company Number: AU-ROXANE LABORATORIES, INC.-2013-RO-00218RO

PATIENT
  Age: 55 Week
  Sex: 0

DRUGS (3)
  1. LITHIUM CARBONATE [Suspect]
     Indication: BIPOLAR DISORDER
     Dosage: 750 MG
  2. VALPROATE [Suspect]
     Indication: BIPOLAR DISORDER
  3. DOSULEPIN [Suspect]
     Indication: BIPOLAR DISORDER

REACTIONS (3)
  - Hyperparathyroidism [Recovered/Resolved]
  - Hypercalcaemia [Recovered/Resolved]
  - Renal impairment [Not Recovered/Not Resolved]
